FAERS Safety Report 5619323-3 (Version None)
Quarter: 2008Q1

REPORT INFORMATION
  Report Type: 
  Country: None (occurrence: None)
  Receive Date: 20080114
  Receipt Date: 20070314
  Transmission Date: 20080703
  Serious: Yes (Other)
  Sender: FDA-Public Use
  Company Number: A03200701989

PATIENT
  Sex: Male

DRUGS (1)
  1. PLAVIX [Suspect]
     Indication: FAMILIAL RISK FACTOR
     Dosage: ORAL
     Route: 048
     Dates: start: 20020101

REACTIONS (2)
  - GASTROINTESTINAL HAEMORRHAGE [None]
  - RENAL FAILURE [None]
